FAERS Safety Report 4432537-3 (Version None)
Quarter: 2004Q3

REPORT INFORMATION
  Report Type: 
  Country: None (occurrence: None)
  Receive Date: 20040825
  Receipt Date: 20040818
  Transmission Date: 20050211
  Serious: Yes (Hospitalization, Other)
  Sender: FDA-Public Use
  Company Number: PHBS2004FR10777

PATIENT
  Age: 80 Year
  Sex: Female

DRUGS (6)
  1. CARTEOL #OT (NVO) [Suspect]
     Indication: GLAUCOMA
     Dosage: 1 GTT, BID
  2. BETAHISTINE [Concomitant]
  3. BUFLOMEDIL [Concomitant]
  4. AZOPT [Concomitant]
  5. AMLOR [Concomitant]
  6. LAMISIL [Concomitant]

REACTIONS (3)
  - BRADYCARDIA [None]
  - DIFFICULTY IN WALKING [None]
  - FALL [None]
